FAERS Safety Report 5387586-8 (Version None)
Quarter: 2007Q3

REPORT INFORMATION
  Report Type: 
  Country: None (occurrence: None)
  Receive Date: 20070711
  Receipt Date: 20070711
  Transmission Date: 20080115
  Serious: No
  Sender: FDA-Public Use
  Company Number: None

PATIENT
  Age: 53 Year
  Sex: Female
  Weight: 75 kg

DRUGS (1)
  1. PROVIGIL [Suspect]
     Dosage: 200 MG DAILY PO
     Route: 048
     Dates: start: 20070422, end: 20070423

REACTIONS (2)
  - PRURITUS [None]
  - URTICARIA [None]
